FAERS Safety Report 9130465 (Version 2)
Quarter: 2013Q1

REPORT INFORMATION
  Report Type: Spontaneous
  Country: RU (occurrence: RU)
  Receive Date: 20130301
  Receipt Date: 20130322
  Transmission Date: 20140127
  Serious: Yes (Hospitalization)
  Sender: FDA-Public Use
  Company Number: RU-ABBOTT-13X-251-1055432-00

PATIENT
  Age: 4 Year
  Sex: Female
  Weight: 17.5 kg

DRUGS (3)
  1. KLACID [Suspect]
     Indication: RESPIRATORY DISORDER
     Dosage: POWDER FOR RECONSTITUTION
     Route: 048
     Dates: start: 20130212, end: 20130217
  2. STODAL [Concomitant]
     Indication: COUGH
     Route: 048
  3. LASOLVAN [Concomitant]
     Indication: COUGH
     Route: 048

REACTIONS (2)
  - Pneumonia [Recovering/Resolving]
  - Product quality issue [Unknown]
